FAERS Safety Report 9323695 (Version 2)
Quarter: 2013Q2

REPORT INFORMATION
  Report Type: Spontaneous
  Country: US (occurrence: US)
  Receive Date: 20130603
  Receipt Date: 20130613
  Transmission Date: 20140414
  Serious: Yes (Other)
  Sender: FDA-Public Use
  Company Number: US-009507513-1305USA016845

PATIENT
  Age: 61 Year
  Sex: Female
  Weight: 95.24 kg

DRUGS (1)
  1. SAPHRIS [Suspect]
     Indication: BIPOLAR DISORDER
     Dosage: UNK, BID
     Route: 060
     Dates: start: 20120728, end: 20120731

REACTIONS (3)
  - Disorientation [Recovered/Resolved]
  - Hallucinations, mixed [Recovered/Resolved]
  - Oedema peripheral [Recovered/Resolved]
